FAERS Safety Report 22355929 (Version 1)
Quarter: 2023Q2

REPORT INFORMATION
  Report Type: Spontaneous
  Country: RU (occurrence: RU)
  Receive Date: 20230523
  Receipt Date: 20230523
  Transmission Date: 20230721
  Serious: Yes (Hospitalization)
  Sender: FDA-Public Use
  Company Number: RU-ABBVIE-5177297

PATIENT
  Age: 41 Year
  Sex: Male
  Weight: 50 kg

DRUGS (2)
  1. KALETRA [Suspect]
     Active Substance: LOPINAVIR\RITONAVIR
     Indication: Suicide attempt
     Dosage: 30 TABLETS AT ONCE
     Route: 048
     Dates: start: 20200118, end: 20200118
  2. LAMIVUDINE\ZIDOVUDINE [Suspect]
     Active Substance: LAMIVUDINE\ZIDOVUDINE
     Indication: Suicide attempt
     Dosage: 10 TABLETS AT ONCE
     Route: 065
     Dates: start: 20200118, end: 20200118

REACTIONS (3)
  - Agitation [Unknown]
  - Nausea [Unknown]
  - Abdominal distension [Unknown]

NARRATIVE: CASE EVENT DATE: 20200118
